FAERS Safety Report 23691561 (Version 2)
Quarter: 2024Q2

REPORT INFORMATION
  Report Type: Spontaneous
  Country: JP (occurrence: JP)
  Receive Date: 20240401
  Receipt Date: 20240403
  Transmission Date: 20240716
  Serious: Yes (Hospitalization)
  Sender: FDA-Public Use
  Company Number: JP-ASTELLAS-2024JP002131

PATIENT
  Age: 3 Decade

DRUGS (3)
  1. PROGRAF [Interacting]
     Active Substance: TACROLIMUS
     Indication: Myasthenia gravis
     Dosage: UNK UNK, UNKNOWN FREQ.
     Route: 048
  2. PAXLOVID [Interacting]
     Active Substance: NIRMATRELVIR\RITONAVIR
     Indication: COVID-19
     Dosage: UNK UNK, UNKNOWN FREQ.
     Route: 048
  3. AMITRIPTYLINE [Concomitant]
     Active Substance: AMITRIPTYLINE
     Indication: Product used for unknown indication
     Dosage: UNK UNK, UNKNOWN FREQ.
     Route: 048

REACTIONS (6)
  - Immunosuppressant drug level increased [Unknown]
  - Malaise [Unknown]
  - Diarrhoea [Unknown]
  - COVID-19 [Unknown]
  - Drug interaction [Unknown]
  - Product prescribing issue [Unknown]
